FAERS Safety Report 16373426 (Version 3)
Quarter: 2019Q2

REPORT INFORMATION
  Report Type: Spontaneous
  Country: JP (occurrence: JP)
  Receive Date: 20190530
  Receipt Date: 20190620
  Transmission Date: 20190711
  Serious: Yes (Death)
  Sender: FDA-Public Use
  Company Number: JP-NAPPMUNDI-GBR-2019-0066822

PATIENT
  Age: 83 Year
  Sex: Male

DRUGS (1)
  1. UNIPHYL [Suspect]
     Active Substance: THEOPHYLLINE ANHYDROUS
     Indication: EMPHYSEMA
     Dosage: 200 MG, DAILY (200MG STRENGTH)
     Route: 048
     Dates: start: 20160615, end: 20160715

REACTIONS (3)
  - Cardiac failure [Fatal]
  - Atrial tachycardia [Fatal]
  - Arrhythmia [Fatal]

NARRATIVE: CASE EVENT DATE: 20160715
